FAERS Safety Report 17886950 (Version 1)
Quarter: 2020Q2

REPORT INFORMATION
  Report Type: Spontaneous
  Country: DE (occurrence: DE)
  Receive Date: 20200611
  Receipt Date: 20200611
  Transmission Date: 20200714
  Serious: Yes (Other)
  Sender: FDA-Public Use
  Company Number: DE-009507513-2006DEU000339

PATIENT
  Age: 27 Year
  Sex: Female
  Weight: 65 kg

DRUGS (5)
  1. NUVARING [Suspect]
     Active Substance: ETHINYL ESTRADIOL\ETONOGESTREL
     Indication: CONTRACEPTION
     Dosage: FARMACUTICAL FORM REPORTED AS: ^VAGINAL DELIVERY SYSTEM^
     Dates: start: 2014, end: 2019
  2. AMICETTE [Suspect]
     Active Substance: ETHINYL ESTRADIOL\NORGESTIMATE
     Dosage: ADMINISTERED FROM 2009 TO 2014
  3. CILEST [Suspect]
     Active Substance: ETHINYL ESTRADIOL\NORGESTIMATE
     Indication: CONTRACEPTION
     Route: 048
     Dates: start: 200905, end: 2014
  4. ETHINYL ESTRADIOL (+) ETONOGESTREL [Suspect]
     Active Substance: ETHINYL ESTRADIOL\ETONOGESTREL
     Indication: CONTRACEPTION
     Dosage: UNK
     Dates: start: 2019, end: 2020
  5. L-THYROXIN [Concomitant]
     Active Substance: LEVOTHYROXINE SODIUM
     Dosage: 112 MICROGRAM

REACTIONS (14)
  - Disturbance in attention [Recovered/Resolved]
  - Apathy [Recovered/Resolved]
  - Hypothyroidism [Recovered/Resolved with Sequelae]
  - Loss of libido [Recovered/Resolved]
  - Autoimmune thyroiditis [Recovered/Resolved with Sequelae]
  - Fatigue [Recovered/Resolved]
  - Headache [Recovered/Resolved]
  - Illusion [Recovered/Resolved with Sequelae]
  - Depression [Recovered/Resolved with Sequelae]
  - Anorexia nervosa [Recovered/Resolved with Sequelae]
  - Mood swings [Recovered/Resolved]
  - Weight decreased [Recovered/Resolved]
  - Malaise [Recovered/Resolved]
  - Dyspepsia [Recovered/Resolved with Sequelae]

NARRATIVE: CASE EVENT DATE: 20090601
